FAERS Safety Report 6410419-5 (Version None)
Quarter: 2009Q4

REPORT INFORMATION
  Report Type: 
  Country: None (occurrence: None)
  Receive Date: 20091022
  Receipt Date: 20091019
  Transmission Date: 20100525
  Serious: Yes (Other)
  Sender: FDA-Public Use
  Company Number: CA-BAYER-200915689BCC

PATIENT
  Age: 73 Year
  Sex: Male

DRUGS (10)
  1. ASPIRIN [Suspect]
     Indication: DRUG USE FOR UNKNOWN INDICATION
     Route: 065
  2. AMIODARONE [Suspect]
     Route: 065
  3. ACE INHIBITOR [Suspect]
     Route: 065
  4. BETA 2 ADRENOCEPTOR AGONIST AGENTS [Suspect]
     Route: 065
  5. FERROUS GLUCONATE [Suspect]
     Route: 065
  6. LASIX [Suspect]
     Route: 065
  7. LEVOTHYROXINE SODIUM [Suspect]
     Route: 065
  8. STATINS [Suspect]
     Route: 065
  9. WARFARIN SODIUM [Suspect]
     Route: 065
  10. BETA BLOCKING AGENTS [Concomitant]
     Route: 065

REACTIONS (2)
  - COLITIS [None]
  - MESENTERIC OCCLUSION [None]
